FAERS Safety Report 6363582-9 (Version None)
Quarter: 2009Q3

REPORT INFORMATION
  Report Type: 
  Country: None (occurrence: None)
  Receive Date: 20090919
  Receipt Date: 20090701
  Transmission Date: 20100115
  Serious: No
  Sender: FDA-Public Use
  Company Number: US-ABBOTT-09P-163-0583114-00

PATIENT
  Sex: Female
  Weight: 110.32 kg

DRUGS (11)
  1. HUMIRA [Suspect]
     Indication: RHEUMATOID ARTHRITIS
     Route: 058
     Dates: start: 20080101, end: 20090101
  2. OMEPRAZOLE [Concomitant]
     Indication: GASTRIC DISORDER
  3. METHOTREXATE [Concomitant]
     Indication: DRUG USE FOR UNKNOWN INDICATION
  4. POTASSIUM CL [Concomitant]
     Indication: DRUG USE FOR UNKNOWN INDICATION
  5. BENZAPRO HCTZ [Concomitant]
     Indication: DRUG USE FOR UNKNOWN INDICATION
     Dosage: 10/12.5, 1 IN 1 DAYS
  6. PREDNISONE [Concomitant]
     Indication: DRUG USE FOR UNKNOWN INDICATION
     Dosage: DAILY, 17.5 MG 10/5/  ...1/2 OF A 5
  7. ULTRACET [Concomitant]
     Indication: PAIN
  8. CELLINIUM [Concomitant]
     Indication: DRUG USE FOR UNKNOWN INDICATION
  9. FOLIC ACID [Concomitant]
     Indication: DRUG USE FOR UNKNOWN INDICATION
  10. M.V.I. [Concomitant]
     Indication: DRUG USE FOR UNKNOWN INDICATION
  11. IBUPROFEN [Concomitant]
     Indication: DRUG USE FOR UNKNOWN INDICATION

REACTIONS (2)
  - DISEASE PROGRESSION [None]
  - DRUG INEFFECTIVE [None]
